FAERS Safety Report 25011812 (Version 1)
Quarter: 2025Q1

REPORT INFORMATION
  Report Type: Report from Study
  Country: IN (occurrence: IN)
  Receive Date: 20250226
  Receipt Date: 20250226
  Transmission Date: 20250409
  Serious: Yes (Death)
  Sender: ROCHE
  Company Number: IN-ROCHE-10000217730

PATIENT
  Age: 33 Year
  Sex: Female

DRUGS (2)
  1. CELLCEPT [Suspect]
     Active Substance: MYCOPHENOLATE MOFETIL
     Indication: Renal transplant
     Dosage: 750 MG IN THE MORNING AND 500 MG IN THE EVENING
     Route: 048
     Dates: start: 20221010
  2. CELLCEPT [Suspect]
     Active Substance: MYCOPHENOLATE MOFETIL
     Dosage: 750 MG IN THE MORNING AND 500 MG IN THE EVENING
     Route: 048
     Dates: start: 20221010

REACTIONS (1)
  - Death [Fatal]
